FAERS Safety Report 9551299 (Version 1)
Quarter: 2013Q3

REPORT INFORMATION
  Report Type: Report from Study
  Country: GB (occurrence: GB)
  Receive Date: 20130925
  Receipt Date: 20130925
  Transmission Date: 20140515
  Serious: Yes (Hospitalization, Other)
  Sender: FDA-Public Use
  Company Number: GB-AMGEN-GBRCT2013067102

PATIENT
  Age: 53 Year
  Sex: Male
  Weight: 141 kg

DRUGS (5)
  1. ETANERCEPT [Suspect]
     Indication: PRODUCT USED FOR UNKNOWN INDICATION
     Dosage: 50 MG, QWK
     Route: 065
     Dates: start: 20121105, end: 20130410
  2. ETODOLAC [Concomitant]
     Dosage: UNK
     Route: 065
     Dates: start: 20070803
  3. XALATAN [Concomitant]
     Dosage: UNK
     Route: 065
     Dates: start: 20121101
  4. VERAPAMIL [Concomitant]
     Dosage: UNK
     Route: 065
     Dates: start: 20130318, end: 20130510
  5. ACETYLSALICYLIC ACID [Concomitant]
     Dosage: UNK
     Route: 065
     Dates: start: 20130318

REACTIONS (1)
  - Penile cancer [Recovered/Resolved]
